FAERS Safety Report 16354258 (Version 1)
Quarter: 2019Q2

REPORT INFORMATION
  Report Type: Report from Study
  Country: CA (occurrence: CA)
  Receive Date: 20190524
  Receipt Date: 20190524
  Transmission Date: 20190711
  Serious: Yes (Death, Hospitalization)
  Sender: FDA-Public Use
  Company Number: CA-PFIZER INC-2019220332

PATIENT
  Sex: Female

DRUGS (4)
  1. HYDROCHLOROTHIAZIDE. [Concomitant]
     Active Substance: HYDROCHLOROTHIAZIDE
     Dosage: UNK
  2. ZELBORAF [Interacting]
     Active Substance: VEMURAFENIB
     Indication: METASTATIC MALIGNANT MELANOMA
     Dosage: 960 MG, 2X/DAY
     Route: 048
  3. FLUCONAZOLE. [Suspect]
     Active Substance: FLUCONAZOLE
     Dosage: UNK
     Route: 065
  4. COTELLIC [Interacting]
     Active Substance: COBIMETINIB
     Indication: METASTATIC MALIGNANT MELANOMA
     Dosage: 60 MG, 1X/DAY
     Route: 048

REACTIONS (12)
  - Acrochordon [Fatal]
  - Renal failure [Fatal]
  - Drug interaction [Fatal]
  - Headache [Fatal]
  - Mass [Fatal]
  - Urosepsis [Fatal]
  - Diarrhoea [Fatal]
  - Dizziness [Fatal]
  - Dyspepsia [Fatal]
  - Vomiting [Fatal]
  - Nausea [Fatal]
  - Pain [Fatal]
